FAERS Safety Report 26128952 (Version 1)
Quarter: 2025Q4

REPORT INFORMATION
  Report Type: Spontaneous
  Country: EU (occurrence: EU)
  Receive Date: 20251208
  Receipt Date: 20251208
  Transmission Date: 20260117
  Serious: Yes (Hospitalization)
  Sender: ALMUS
  Company Number: EU-ALMIRALL-DE-2025-4248

PATIENT
  Age: 61 Year
  Sex: Female

DRUGS (1)
  1. KLISYRI [Suspect]
     Active Substance: TIRBANIBULIN
     Indication: Carcinoma in situ
     Dates: start: 20251022, end: 20251026

REACTIONS (2)
  - Paraesthesia [Not Recovered/Not Resolved]
  - Asthenia [Recovered/Resolved]

NARRATIVE: CASE EVENT DATE: 20251024
